FAERS Safety Report 7234775-3 (Version None)
Quarter: 2011Q1

REPORT INFORMATION
  Report Type: 
  Country: None (occurrence: None)
  Receive Date: 20110114
  Receipt Date: 20110114
  Transmission Date: 20110831
  Serious: No
  Sender: FDA-Public Use
  Company Number: None

PATIENT

DRUGS (2)
  1. THROMBIN-JMI [Suspect]
     Dates: start: 20110113, end: 20110113
  2. THROMBIN-JMI [Suspect]

REACTIONS (2)
  - PRODUCT SOLUBILITY ABNORMAL [None]
  - MEDICATION ERROR [None]
